FAERS Safety Report 4725032-5 (Version None)
Quarter: 2005Q3

REPORT INFORMATION
  Report Type: 
  Country: None (occurrence: None)
  Receive Date: 20050722
  Receipt Date: 20050714
  Transmission Date: 20060218
  Serious: Yes (Disabling)
  Sender: FDA-Public Use
  Company Number: 2005102335

PATIENT
  Age: 43 Year
  Sex: Male

DRUGS (3)
  1. LIPITOR [Suspect]
     Indication: BLOOD CHOLESTEROL INCREASED
     Dosage: ORAL
     Route: 048
     Dates: end: 20050101
  2. DEPAKOTE [Concomitant]
  3. AMBIEN [Concomitant]

REACTIONS (10)
  - AFFECTIVE DISORDER [None]
  - FEELING ABNORMAL [None]
  - IMPAIRED WORK ABILITY [None]
  - INSOMNIA [None]
  - MUSCLE INJURY [None]
  - MYALGIA [None]
  - NERVOUSNESS [None]
  - PAIN IN EXTREMITY [None]
  - SPINAL DISORDER [None]
  - WEIGHT DECREASED [None]
